FAERS Safety Report 5197335-4 (Version None)
Quarter: 2006Q4

REPORT INFORMATION
  Report Type: 
  Country: None (occurrence: None)
  Receive Date: 20060929
  Receipt Date: 20060607
  Transmission Date: 20070319
  Serious: Yes (Other)
  Sender: FDA-Public Use
  Company Number: 13404181

PATIENT
  Age: 74 Year
  Sex: Male

DRUGS (1)
  1. EMSAM [Suspect]
     Indication: PANIC DISORDER
     Dosage: 1 DOSAGE FORM,TOP
     Route: 061
     Dates: start: 20060605

REACTIONS (3)
  - HEADACHE [None]
  - HYPERTENSION [None]
  - TENSION [None]
